FAERS Safety Report 5130414-6 (Version None)
Quarter: 2006Q4

REPORT INFORMATION
  Report Type: 
  Country: None (occurrence: None)
  Receive Date: 20061013
  Receipt Date: 20060928
  Transmission Date: 20070319
  Serious: Yes (Hospitalization, Other)
  Sender: FDA-Public Use
  Company Number: US200609007297

PATIENT
  Age: 69 Year
  Sex: Female

DRUGS (14)
  1. FORTEO [Suspect]
     Indication: OSTEOPOROSIS
     Dates: start: 20060708
  2. FORTEO [Concomitant]
  3. FOSAMAX [Concomitant]
  4. NEUROTON (CITICOLINE SODIUM) [Concomitant]
  5. NEXIUM [Concomitant]
  6. THEO-DUR [Concomitant]
  7. NOLVADEX ASTRAZENECA (TAMOXIFEN CITRATE) [Concomitant]
  8. PREDNISONE TAB [Concomitant]
  9. TIAZAC [Concomitant]
  10. FLONASE (FLUTICASONE PROPIONATE) NASAL DROP (NASAL SPRAY TOO) [Concomitant]
  11. SPIRIVA  PFIZER   (TIOTROPIUM BROMIDE) INHALER [Concomitant]
  12. DARVOCET-N 100 [Concomitant]
  13. ALBUTEROL (SALBUTAMOL) INHALER [Concomitant]
  14. OXYGEN (OXYGEN) [Concomitant]

REACTIONS (4)
  - FALL [None]
  - HIP FRACTURE [None]
  - PHARMACEUTICAL PRODUCT COMPLAINT [None]
  - PNEUMONIA [None]
